FAERS Safety Report 14967238 (Version 1)
Quarter: 2018Q2

REPORT INFORMATION
  Report Type: Spontaneous
  Country: IN (occurrence: IN)
  Receive Date: 20180604
  Receipt Date: 20180604
  Transmission Date: 20180711
  Serious: Yes (Hospitalization, Other)
  Sender: FDA-Public Use
  Company Number: IN-CHEPLA-C20170935

PATIENT
  Age: 18 Year
  Sex: Female

DRUGS (3)
  1. ALL-TRANS-RETINOIC ACID (ATRA) [Suspect]
     Active Substance: TRETINOIN
     Indication: ACUTE PROMYELOCYTIC LEUKAEMIA
     Route: 065
  2. ARSENIC TRIOXIDE (ATO) [Suspect]
     Active Substance: ARSENIC TRIOXIDE
     Indication: ACUTE PROMYELOCYTIC LEUKAEMIA
     Route: 065
  3. ALL-TRANS-RETINOIC ACID (ATRA) [Suspect]
     Active Substance: TRETINOIN
     Indication: ACUTE PROMYELOCYTIC LEUKAEMIA
     Dosage: ATRA AND ATO WERE WITHDRAWN TILL SYMPTOM SUBSIDES. ATRA WAS RE-STARTED ON A LOWER DOSE AFTER 8 DAYS

REACTIONS (2)
  - Pancreatitis acute [Unknown]
  - Acute promyelocytic leukaemia differentiation syndrome [Unknown]
